FAERS Safety Report 8161322-4 (Version None)
Quarter: 2012Q1

REPORT INFORMATION
  Report Type: 
  Country: None (occurrence: None)
  Receive Date: 20120224
  Receipt Date: 20120221
  Transmission Date: 20120608
  Serious: No
  Sender: FDA-Public Use
  Company Number: US-PFIZER INC-2012034335

PATIENT
  Sex: Female
  Weight: 90.703 kg

DRUGS (4)
  1. FLECTOR [Suspect]
     Indication: JOINT DISLOCATION
     Dosage: 3 PATCHES
     Dates: start: 20120204, end: 20120205
  2. LEVOTHYROXINE [Concomitant]
     Indication: THYROID DISORDER
     Dosage: 100 UG, DAILY
  3. FLECTOR [Suspect]
     Indication: BURNING SENSATION
  4. GLYBURIDE AND METFORMIN HYDROCHLORIDE [Concomitant]
     Indication: DIABETES MELLITUS
     Dosage: 5/500 MG

REACTIONS (1)
  - DRUG INEFFECTIVE [None]
